FAERS Safety Report 7770773-9 (Version None)
Quarter: 2011Q3

REPORT INFORMATION
  Report Type: 
  Country: None (occurrence: None)
  Receive Date: 20110922
  Receipt Date: 20110606
  Transmission Date: 20111222
  Serious: No
  Sender: FDA-Public Use
  Company Number: US-ASTRAZENECA-2011SE16743

PATIENT
  Age: 512 Month
  Sex: Female
  Weight: 90.7 kg

DRUGS (3)
  1. SEROQUEL XR [Suspect]
     Indication: BIPOLAR DISORDER
     Route: 048
     Dates: start: 20101101, end: 20110201
  2. SEROQUEL XR [Suspect]
     Route: 048
  3. XANAX [Concomitant]
     Indication: ANXIETY
     Route: 048

REACTIONS (10)
  - AGGRESSION [None]
  - DRUG INEFFECTIVE [None]
  - MALAISE [None]
  - DRUG DOSE OMISSION [None]
  - INSOMNIA [None]
  - MANIA [None]
  - PSYCHOMOTOR HYPERACTIVITY [None]
  - SWOLLEN TONGUE [None]
  - APHASIA [None]
  - DRUG INTOLERANCE [None]
